FAERS Safety Report 6210249-3 (Version None)
Quarter: 2009Q2

REPORT INFORMATION
  Report Type: 
  Country: None (occurrence: None)
  Receive Date: 20090601
  Receipt Date: 20090528
  Transmission Date: 20091009
  Serious: Yes (Other)
  Sender: FDA-Public Use
  Company Number: AU-BRISTOL-MYERS SQUIBB COMPANY-14629554

PATIENT
  Age: 69 Year
  Sex: Female

DRUGS (8)
  1. AVAPRO [Suspect]
     Indication: HYPERTENSION
     Route: 048
     Dates: start: 20040101
  2. ARAVA [Suspect]
     Indication: RHEUMATOID ARTHRITIS
     Route: 048
     Dates: start: 20070816, end: 20090319
  3. PREDNISONE [Concomitant]
     Indication: DERMATITIS BULLOUS
     Dosage: (50MG)FOR 1D (25MG) FOR 3D (12.5MG) FOR 3D (6.25MG) FOR 4D (7.5MG) FOR COUPLE OF MONTHS. TABLET
     Route: 048
  4. NEXIUM [Concomitant]
     Indication: GASTROOESOPHAGEAL REFLUX DISEASE
  5. ZANTAC [Concomitant]
     Indication: GASTROOESOPHAGEAL REFLUX DISEASE
  6. NORVASC [Concomitant]
     Indication: HYPERTENSION
  7. LIPITOR [Concomitant]
     Dosage: TAB
     Route: 048
  8. AVAPRO [Concomitant]
     Indication: HYPERTENSION

REACTIONS (1)
  - DERMATITIS BULLOUS [None]
